FAERS Safety Report 8131364 (Version 3)
Quarter: 2013Q1

REPORT INFORMATION
  Report Type: Spontaneous
  Country: US (occurrence: US)
  Receive Date: 20110912
  Receipt Date: 20130228
  Transmission Date: 20140127
  Serious: Yes (Other)
  Sender: FDA-Public Use
  Company Number: US-GLAXOSMITHKLINE-A0898469A

PATIENT
  Age: 65 Year
  Sex: Male

DRUGS (1)
  1. AVANDIA [Suspect]
     Indication: TYPE 2 DIABETES MELLITUS
     Dosage: 4MG PER DAY
     Route: 048
     Dates: start: 20070214, end: 20080801

REACTIONS (6)
  - Hypoglycaemia [Not Recovered/Not Resolved]
  - Fluid retention [Unknown]
  - Hyperlipidaemia [Unknown]
  - Dyspnoea [Unknown]
  - Hypertension [Unknown]
  - Dyspnoea [Unknown]
